FAERS Safety Report 10676033 (Version 1)
Quarter: 2014Q4

REPORT INFORMATION
  Report Type: Spontaneous
  Country: CN (occurrence: CN)
  Receive Date: 20141225
  Receipt Date: 20141225
  Transmission Date: 20150529
  Serious: Yes (Hospitalization, Other)
  Sender: FDA-Public Use
  Company Number: PHHY2014CN165076

PATIENT
  Age: 8 Year
  Sex: Male
  Weight: 51.8 kg

DRUGS (4)
  1. LAMOTRIGINE. [Suspect]
     Active Substance: LAMOTRIGINE
     Indication: SEIZURE
     Route: 065
  2. CLONAZEPAM. [Suspect]
     Active Substance: CLONAZEPAM
     Indication: SEIZURE
     Dosage: 0.25 MG IN THE MORNING AND 0.125 MG IN THE EVENING
     Route: 065
  3. OXCARBAZEPINE. [Suspect]
     Active Substance: OXCARBAZEPINE
     Indication: SEIZURE
     Route: 065
  4. VALPROATE SODIUM. [Suspect]
     Active Substance: VALPROATE SODIUM
     Indication: SEIZURE
     Route: 065

REACTIONS (22)
  - Wheezing [Not Recovered/Not Resolved]
  - Conjunctival hyperaemia [Unknown]
  - Abasia [Recovered/Resolved]
  - Cyanosis [Recovering/Resolving]
  - Erythema [Unknown]
  - Eye swelling [Recovered/Resolved]
  - Obstructive airways disorder [Unknown]
  - Seizure [Unknown]
  - Drug reaction with eosinophilia and systemic symptoms [Unknown]
  - Exercise tolerance decreased [Unknown]
  - Mouth ulceration [Unknown]
  - Blister [Unknown]
  - Cough [Recovering/Resolving]
  - Dyspnoea [Recovering/Resolving]
  - Bronchopneumonia [Recovering/Resolving]
  - Depression [Unknown]
  - Pruritus [Unknown]
  - Therapeutic response decreased [Unknown]
  - Obliterative bronchiolitis [Recovering/Resolving]
  - Muscular weakness [Recovered/Resolved]
  - Pyrexia [Recovering/Resolving]
  - Rash [Unknown]
